FAERS Safety Report 14957252 (Version 1)
Quarter: 2018Q2

REPORT INFORMATION
  Report Type: Spontaneous
  Country: DE (occurrence: DE)
  Receive Date: 20180531
  Receipt Date: 20180531
  Transmission Date: 20180711
  Serious: Yes (Hospitalization, Other)
  Sender: FDA-Public Use
  Company Number: DE-PFIZER INC-2018217971

PATIENT
  Age: 34 Year
  Sex: Male

DRUGS (9)
  1. ARIPIPRAZOLE. [Suspect]
     Active Substance: ARIPIPRAZOLE
     Dosage: 1 DF = UPTO 30MG FROM 11-AUG (YR UNK) TO 09-SEP-2016
     Route: 048
     Dates: end: 20160909
  2. ARIPIPRAZOLE. [Suspect]
     Active Substance: ARIPIPRAZOLE
     Dosage: 5-20 MG (1DF = 5MG TO 10MG)
     Route: 048
     Dates: start: 20161214, end: 20161221
  3. QUETIAPINE. [Suspect]
     Active Substance: QUETIAPINE
     Dosage: 1 DF, UNK
     Route: 048
     Dates: start: 20170207
  4. LEVETIRACETAM. [Suspect]
     Active Substance: LEVETIRACETAM
     Indication: EPILEPSY
     Dosage: 500 MG, QD
     Route: 065
  5. QUETIAPINE. [Suspect]
     Active Substance: QUETIAPINE
     Dosage: DF = UP TO 400MG 11-AUG (YR UNK) TO 09-SEP-2016
     Route: 048
     Dates: end: 20160909
  6. KALIUM DURULE [Concomitant]
     Dosage: 1 DF, QD (1 DF = 1 POUCH)
     Route: 048
     Dates: start: 20161214
  7. QUETIAPINE. [Suspect]
     Active Substance: QUETIAPINE
     Dosage: 1 DF = 100 TO 300MG ONCE DAILY
     Route: 048
     Dates: start: 20161214, end: 20161214
  8. ARIPIPRAZOLE. [Suspect]
     Active Substance: ARIPIPRAZOLE
     Dosage: 20 MG, UNK
     Route: 048
     Dates: start: 20161222
  9. ARIPIPRAZOLE. [Suspect]
     Active Substance: ARIPIPRAZOLE
     Dosage: 1 DF, UNK
     Route: 048
     Dates: start: 20170207

REACTIONS (3)
  - Therapy cessation [Unknown]
  - Stupor [Unknown]
  - Epilepsy [Recovered/Resolved]

NARRATIVE: CASE EVENT DATE: 20161215
